FAERS Safety Report 19059948 (Version 1)
Quarter: 2021Q1

REPORT INFORMATION
  Report Type: Spontaneous
  Country: US (occurrence: US)
  Receive Date: 20210326
  Receipt Date: 20210326
  Transmission Date: 20210420
  Serious: No
  Sender: FDA-Public Use
  Company Number: US-SA-2021SA101987

PATIENT
  Age: 48 Year
  Sex: Female

DRUGS (1)
  1. DUPIXENT [Suspect]
     Active Substance: DUPILUMAB
     Indication: SINUS POLYP DEGENERATION
     Dosage: 1 DF, QOW
     Route: 058
     Dates: start: 202011

REACTIONS (2)
  - Off label use [Unknown]
  - Vision blurred [Unknown]

NARRATIVE: CASE EVENT DATE: 202011
